FAERS Safety Report 7772663-4 (Version None)
Quarter: 2011Q3

REPORT INFORMATION
  Report Type: 
  Country: None (occurrence: None)
  Receive Date: 20110922
  Receipt Date: 20110324
  Transmission Date: 20111222
  Serious: No
  Sender: FDA-Public Use
  Company Number: US-ASTRAZENECA-2011SE16800

PATIENT
  Age: 54 Year
  Sex: Female
  Weight: 75.3 kg

DRUGS (2)
  1. SEROQUEL XR [Suspect]
     Indication: DEPRESSION
     Route: 048
  2. XAXEX [Concomitant]
     Indication: DEPRESSION

REACTIONS (3)
  - VOMITING [None]
  - DRUG DOSE OMISSION [None]
  - INSOMNIA [None]
